FAERS Safety Report 5890462-5 (Version None)
Quarter: 2008Q3

REPORT INFORMATION
  Report Type: 
  Country: None (occurrence: None)
  Receive Date: 20080922
  Receipt Date: 20080909
  Transmission Date: 20090109
  Serious: Yes (Other)
  Sender: FDA-Public Use
  Company Number: ES-JNJFOC-20080903312

PATIENT
  Age: 76 Year
  Sex: Female

DRUGS (3)
  1. INFLIXIMAB [Suspect]
     Indication: RHEUMATOID ARTHRITIS
     Dosage: RECEIVED 4 INFUSIONS
     Route: 042
  2. AZATHIOPRINE [Concomitant]
  3. PREDNISONE TAB [Concomitant]

REACTIONS (1)
  - DERMATITIS PSORIASIFORM [None]
